FAERS Safety Report 13546004 (Version 1)
Quarter: 2017Q2

REPORT INFORMATION
  Report Type: Spontaneous
  Country: US (occurrence: US)
  Receive Date: 20170515
  Receipt Date: 20170515
  Transmission Date: 20170830
  Serious: Yes (Other)
  Sender: FDA-Public Use
  Company Number: US-WARNER CHILCOTT-2016-000819

PATIENT
  Sex: Female

DRUGS (2)
  1. ACTONEL [Suspect]
     Active Substance: RISEDRONATE SODIUM
     Indication: OSTEOPOROSIS
     Dosage: UNKNOWN
     Route: 048
  2. ACTONEL [Suspect]
     Active Substance: RISEDRONATE SODIUM
     Indication: OSTEOPOROSIS PROPHYLAXIS

REACTIONS (5)
  - Pathological fracture [Unknown]
  - Stress fracture [Unknown]
  - Femur fracture [Unknown]
  - Bone disorder [Unknown]
  - Low turnover osteopathy [Unknown]
